FAERS Safety Report 4999337-7 (Version None)
Quarter: 2006Q2

REPORT INFORMATION
  Report Type: 
  Country: None (occurrence: None)
  Receive Date: 20060509
  Receipt Date: 20060509
  Transmission Date: 20061013
  Serious: Yes (Hospitalization)
  Sender: FDA-Public Use
  Company Number: None

PATIENT
  Age: 65 Year
  Sex: Male

DRUGS (13)
  1. WARFARIN SODIUM [Suspect]
     Indication: ATRIAL FIBRILLATION
     Dosage: 5 MG PO QHS EXCEPT  2.5 MG TU/TH/
     Route: 048
     Dates: start: 20050913, end: 20060220
  2. WARFARIN SODIUM [Suspect]
     Indication: MITRAL VALVE REPAIR
     Dosage: 5 MG PO QHS EXCEPT  2.5 MG TU/TH/
     Route: 048
     Dates: start: 20050913, end: 20060220
  3. ALBUTEROL SULFATE AUTOHALER [Concomitant]
  4. BUPROPION HCL [Concomitant]
  5. LANOXIN [Concomitant]
  6. DOXAZOSIN MESYLATE [Concomitant]
  7. DOXAOSIN MESYLATE [Concomitant]
  8. FUROSEMIDE [Concomitant]
  9. LISINOPRIL [Concomitant]
  10. LORAZEPAM [Concomitant]
  11. METOPROLOL EXTEND RELEASE [Concomitant]
  12. NICOTINE [Concomitant]
  13. SIMVASTATIN [Concomitant]

REACTIONS (5)
  - DIZZINESS [None]
  - DYSPNOEA [None]
  - FATIGUE [None]
  - HAEMATOCRIT DECREASED [None]
  - INTERNATIONAL NORMALISED RATIO INCREASED [None]
